FAERS Safety Report 9955949 (Version 1)
Quarter: 2014Q1

REPORT INFORMATION
  Report Type: Report from Study
  Country: US (occurrence: US)
  Receive Date: 20140304
  Receipt Date: 20140304
  Transmission Date: 20141002
  Serious: No
  Sender: FDA-Public Use
  Company Number: US-ABBVIE-13P-163-1083310-00

PATIENT
  Age: 72 Year
  Sex: Female
  Weight: 56.3 kg

DRUGS (3)
  1. HUMIRA [Suspect]
     Indication: RHEUMATOID ARTHRITIS
     Route: 058
     Dates: start: 201303, end: 20130423
  2. UNKNOWN CARDIAC MEDICATION [Concomitant]
     Indication: CARDIAC DISORDER
     Dosage: UNKNOWN
  3. UNKNOWN ASTHMA MEDICATION [Concomitant]
     Indication: ASTHMA
     Dosage: UNKNOWN

REACTIONS (6)
  - Malaise [Recovering/Resolving]
  - Decreased appetite [Not Recovered/Not Resolved]
  - Pyrexia [Recovered/Resolved]
  - Vomiting [Recovered/Resolved]
  - Rash [Recovered/Resolved]
  - Malaise [Recovered/Resolved]
